FAERS Safety Report 7144817-1 (Version None)
Quarter: 2010Q4

REPORT INFORMATION
  Report Type: 
  Country: None (occurrence: None)
  Receive Date: 20101208
  Receipt Date: 20101129
  Transmission Date: 20110411
  Serious: Yes (Other)
  Sender: FDA-Public Use
  Company Number: TR-ELI_LILLY_AND_COMPANY-TR201012000477

PATIENT

DRUGS (3)
  1. HUMULIN N [Suspect]
     Indication: GESTATIONAL DIABETES
     Dosage: 24 U, DAILY (1/D)
     Route: 064
     Dates: start: 20100901, end: 20101120
  2. NOVORAPID [Concomitant]
     Indication: GESTATIONAL DIABETES
     Dosage: 24 U, 3/D
     Route: 064
     Dates: start: 20100901, end: 20101120
  3. VITAMINS [Concomitant]
     Dosage: UNK, DAILY (1/D)
     Route: 064

REACTIONS (3)
  - DRUG EXPOSURE DURING PREGNANCY [None]
  - RESPIRATORY TRACT INFECTION [None]
  - SPINAL DISORDER [None]
